FAERS Safety Report 4979128-3 (Version None)
Quarter: 2006Q2

REPORT INFORMATION
  Report Type: 
  Country: None (occurrence: None)
  Receive Date: 20060421
  Receipt Date: 20060417
  Transmission Date: 20061013
  Serious: Yes (Death)
  Sender: FDA-Public Use
  Company Number: US-JNJFOC-20060403786

PATIENT
  Age: 77 Year
  Sex: Male

DRUGS (8)
  1. LEVAQUIN [Suspect]
     Indication: PNEUMONIA
     Route: 042
  2. LEVAQUIN [Suspect]
     Route: 048
  3. CLINDAMYCIN [Concomitant]
  4. METFORMIN [Concomitant]
  5. TEGRETOL [Concomitant]
  6. CELEXA [Concomitant]
  7. PROTONIX [Concomitant]
  8. LANTUS [Concomitant]

REACTIONS (2)
  - DEATH [None]
  - RENAL FAILURE ACUTE [None]
